FAERS Safety Report 13527296 (Version 1)
Quarter: 2017Q2

REPORT INFORMATION
  Report Type: Spontaneous
  Country: CA (occurrence: CA)
  Receive Date: 20170509
  Receipt Date: 20170509
  Transmission Date: 20170830
  Serious: Yes (Hospitalization, Other)
  Sender: FDA-Public Use
  Company Number: CA-PFIZER INC-2017194499

PATIENT
  Age: 84 Year
  Sex: Female

DRUGS (15)
  1. SYNTHROID [Concomitant]
     Active Substance: LEVOTHYROXINE SODIUM
  2. VITAMIN B12 [Concomitant]
     Active Substance: CYANOCOBALAMIN
  3. ZAROXOLYN [Concomitant]
     Active Substance: METOLAZONE
  4. GABAPENTIN. [Concomitant]
     Active Substance: GABAPENTIN
  5. OMEGA 3 /01333901/ [Concomitant]
     Active Substance: FISH OIL\TOCOPHEROL
  6. IRBESARTAN. [Concomitant]
     Active Substance: IRBESARTAN
  7. EZETIMIBE. [Concomitant]
     Active Substance: EZETIMIBE
  8. BISOPROLOL [Concomitant]
     Active Substance: BISOPROLOL
  9. EURO-FER [Concomitant]
  10. RABEPRAZOLE [Concomitant]
     Active Substance: RABEPRAZOLE
  11. WARFARIN [Concomitant]
     Active Substance: WARFARIN
  12. REVATIO [Suspect]
     Active Substance: SILDENAFIL CITRATE
     Indication: PULMONARY ARTERIAL HYPERTENSION
     Dosage: 20 MG, UNK
     Route: 048
     Dates: start: 20160223
  13. VITAMIN D /00107901/ [Concomitant]
     Active Substance: ERGOCALCIFEROL
  14. TYLENOL [Concomitant]
     Active Substance: ACETAMINOPHEN
  15. OXYGEN. [Concomitant]
     Active Substance: OXYGEN

REACTIONS (1)
  - Kidney infection [Recovered/Resolved]
